FAERS Safety Report 7094405-0 (Version None)
Quarter: 2010Q4

REPORT INFORMATION
  Report Type: 
  Country: None (occurrence: None)
  Receive Date: 20101110
  Receipt Date: 20101028
  Transmission Date: 20110411
  Serious: Yes (Death, Hospitalization)
  Sender: FDA-Public Use
  Company Number: GB-JNJFOC-20101100507

PATIENT
  Age: 70 Year
  Sex: Male

DRUGS (5)
  1. ERYTHROMYCIN [Suspect]
     Indication: PSOAS ABSCESS
     Route: 065
  2. SIMVASTATIN [Interacting]
     Indication: HYPERCHOLESTEROLAEMIA
     Route: 065
  3. CEFUROXIME [Concomitant]
     Indication: PSOAS ABSCESS
     Route: 042
  4. FLUCLOXACILLIN [Concomitant]
     Indication: PSOAS ABSCESS
     Route: 048
  5. METRONIDAZOLE [Concomitant]
     Indication: PSOAS ABSCESS
     Route: 042

REACTIONS (17)
  - ALANINE AMINOTRANSFERASE INCREASED [None]
  - ANURIA [None]
  - ASTHENIA [None]
  - BLOOD CREATINE PHOSPHOKINASE INCREASED [None]
  - BLOOD URINE PRESENT [None]
  - COGNITIVE DISORDER [None]
  - DISEASE PROGRESSION [None]
  - DRUG INTERACTION [None]
  - DYSPNOEA [None]
  - HYPOREFLEXIA [None]
  - MOVEMENT DISORDER [None]
  - MYALGIA [None]
  - MYOGLOBINURIA [None]
  - MYOSITIS [None]
  - NECROSIS [None]
  - RHABDOMYOLYSIS [None]
  - SEPSIS [None]
